FAERS Safety Report 8215409-8 (Version None)
Quarter: 2012Q1

REPORT INFORMATION
  Report Type: 
  Country: None (occurrence: None)
  Receive Date: 20120316
  Receipt Date: 20120315
  Transmission Date: 20120608
  Serious: Yes (Life-Threatening)
  Sender: FDA-Public Use
  Company Number: JP-B.I. PHARMACEUTICALS,INC./RIDGEFIELD-2012-BP-05008NB

PATIENT
  Age: 81 Year
  Sex: Male

DRUGS (4)
  1. VERAPAMIL HCL [Concomitant]
     Route: 048
  2. DIGOXIN [Concomitant]
     Route: 065
  3. BISOPROLOL FUMARATE [Concomitant]
     Dosage: 2.5 MG
     Route: 065
  4. PRADAXA [Suspect]
     Dosage: 220 MG
     Route: 048
     Dates: start: 20110620

REACTIONS (1)
  - CEREBRAL INFARCTION [None]
